FAERS Safety Report 4450216-3 (Version None)
Quarter: 2004Q3

REPORT INFORMATION
  Report Type: 
  Country: None (occurrence: None)
  Receive Date: 20040914
  Receipt Date: 20040826
  Transmission Date: 20050211
  Serious: Yes (Other)
  Sender: FDA-Public Use
  Company Number: ZANA001290

PATIENT
  Age: 74 Year
  Sex: Male

DRUGS (9)
  1. TIZANIDINE HCL [Suspect]
     Indication: HYPOTONIA
     Dosage: 2 MG DAILY ORAL
     Route: 048
     Dates: start: 20031029, end: 20030218
  2. MUCOSTA (REBAMIPIDE) [Suspect]
     Dates: start: 20031029, end: 20040220
  3. ETODOLAC [Concomitant]
  4. NITRENDIPINE [Concomitant]
  5. BAYASPIRINA (ACETYLSALICYLIC ACID) [Concomitant]
  6. RESPLEN (EPRAZINONE HYDROCHLORIDE) [Concomitant]
  7. EMPYNASE (PRONASE) [Concomitant]
  8. SPELEAR (FUDOSTEINE) [Concomitant]
  9. ISOSORBIDE DINITRATE [Concomitant]

REACTIONS (5)
  - FALSE POSITIVE LABORATORY RESULT [None]
  - HEPATITIS CHOLESTATIC [None]
  - LABORATORY TEST ABNORMAL [None]
  - LYMPHOCYTE STIMULATION TEST POSITIVE [None]
  - URTICARIA [None]
